FAERS Safety Report 8513523-0 (Version None)
Quarter: 2012Q3

REPORT INFORMATION
  Report Type: 
  Country: None (occurrence: None)
  Receive Date: 20120717
  Receipt Date: 20120709
  Transmission Date: 20120928
  Serious: No
  Sender: FDA-Public Use
  Company Number: US-BIOGENIDEC-2012BI024423

PATIENT
  Age: 42 Year
  Sex: Female

DRUGS (2)
  1. AVONEX [Suspect]
     Indication: MULTIPLE SCLEROSIS
     Route: 030
     Dates: start: 19960501, end: 20000501
  2. AVONEX [Suspect]
     Route: 030
     Dates: start: 20120523

REACTIONS (3)
  - OEDEMA PERIPHERAL [None]
  - WEIGHT INCREASED [None]
  - INFLUENZA LIKE ILLNESS [None]
